FAERS Safety Report 7593227-1 (Version None)
Quarter: 2011Q3

REPORT INFORMATION
  Report Type: 
  Country: None (occurrence: None)
  Receive Date: 20110706
  Receipt Date: 20110630
  Transmission Date: 20111222
  Serious: No
  Sender: FDA-Public Use
  Company Number: US-PFIZER INC-2011147891

PATIENT
  Sex: Female

DRUGS (1)
  1. CHANTIX [Suspect]
     Dosage: UNK,
     Dates: start: 20090421

REACTIONS (4)
  - EMOTIONAL DISTRESS [None]
  - MENTAL DISORDER [None]
  - DEPRESSION [None]
  - ANXIETY [None]
